FAERS Safety Report 13509229 (Version 1)
Quarter: 2017Q2

REPORT INFORMATION
  Report Type: Spontaneous
  Country: GB (occurrence: GB)
  Receive Date: 20170503
  Receipt Date: 20170503
  Transmission Date: 20170830
  Serious: Yes (Other)
  Sender: FDA-Public Use
  Company Number: GB-SA-2017SA075535

PATIENT
  Sex: Female

DRUGS (2)
  1. LEMTRADA [Suspect]
     Active Substance: ALEMTUZUMAB
     Indication: MULTIPLE SCLEROSIS
     Route: 041
  2. LEMTRADA [Suspect]
     Active Substance: ALEMTUZUMAB
     Indication: MULTIPLE SCLEROSIS
     Route: 041

REACTIONS (9)
  - Tremor [Unknown]
  - Pain [Unknown]
  - Ill-defined disorder [Unknown]
  - Dizziness [Unknown]
  - Delirium [Unknown]
  - Asthenia [Unknown]
  - Hypoaesthesia [Unknown]
  - Somnolence [Unknown]
  - Infusion site irritation [Unknown]
